FAERS Safety Report 15940383 (Version 1)
Quarter: 2019Q1

REPORT INFORMATION
  Report Type: Spontaneous
  Country: SE (occurrence: SE)
  Receive Date: 20190208
  Receipt Date: 20190208
  Transmission Date: 20190417
  Serious: Yes (Hospitalization)
  Sender: FDA-Public Use
  Company Number: SE-TEVA-2019-SE-1009021

PATIENT
  Age: 64 Year
  Sex: Female
  Weight: 80 kg

DRUGS (1)
  1. ATENOLOL TEVA [Suspect]
     Active Substance: ATENOLOL
     Indication: HYPERTENSION
     Dates: end: 20190101

REACTIONS (5)
  - Hyperhidrosis [Recovered/Resolved]
  - Heart rate irregular [Recovered/Resolved]
  - Fatigue [Recovered/Resolved]
  - Peripheral coldness [Recovered/Resolved]
  - Dizziness [Recovered/Resolved]

NARRATIVE: CASE EVENT DATE: 2018
